FAERS Safety Report 15693938 (Version 1)
Quarter: 2018Q4

REPORT INFORMATION
  Report Type: Spontaneous
  Country: US (occurrence: US)
  Receive Date: 20181126
  Receipt Date: 20181126
  Transmission Date: 20190205
  Serious: No
  Sender: FDA-Public Use
  Company Number: None

PATIENT
  Age: 62 Year
  Sex: Male

DRUGS (1)
  1. TEMOZOLOMIDE  CAP [Suspect]
     Active Substance: TEMOZOLOMIDE
     Route: 048
     Dates: start: 20180801

REACTIONS (5)
  - Platelet count decreased [None]
  - Folliculitis [None]
  - Gastrooesophageal reflux disease [None]
  - Condition aggravated [None]
  - Pulmonary embolism [None]

NARRATIVE: CASE EVENT DATE: 20181121
